FAERS Safety Report 15570019 (Version 1)
Quarter: 2018Q4

REPORT INFORMATION
  Report Type: Spontaneous
  Country: US (occurrence: US)
  Receive Date: 20181031
  Receipt Date: 20181031
  Transmission Date: 20190205
  Serious: Yes (Hospitalization, Other)
  Sender: FDA-Public Use
  Company Number: US-BAYER-2018-197905

PATIENT
  Age: 22 Year
  Sex: Female

DRUGS (1)
  1. MIRENA [Suspect]
     Active Substance: LEVONORGESTREL
     Dosage: 20 MCG/24HR, CONT
     Route: 015

REACTIONS (4)
  - Beta haemolytic streptococcal infection [Not Recovered/Not Resolved]
  - Septic shock [Not Recovered/Not Resolved]
  - Hypotension [Not Recovered/Not Resolved]
  - Intra-abdominal fluid collection [Not Recovered/Not Resolved]

NARRATIVE: CASE EVENT DATE: 20181017
